FAERS Safety Report 8881960 (Version 1)
Quarter: 2012Q4

REPORT INFORMATION
  Report Type: 
  Country: JP (occurrence: JP)
  Receive Date: 20121101
  Receipt Date: 20121101
  Transmission Date: 20130627
  Serious: Yes (Death, Hospitalization)
  Sender: FDA-Public Use
  Company Number: PHHY2012JP098377

PATIENT
  Sex: Male

DRUGS (8)
  1. OXALIPLATIN [Suspect]
     Indication: COLON CANCER METASTATIC
     Dosage: 1 DF, on day 1
     Route: 042
  2. OXALIPLATIN [Suspect]
     Dosage: 1 DF, on day 22
     Route: 042
  3. OXALIPLATIN [Suspect]
     Dosage: 1 DF, on day 43
     Route: 042
  4. CAPECITABINE [Concomitant]
  5. DEXAMETHASONE [Concomitant]
  6. GRANISETRON [Concomitant]
  7. PYRIDOXAL PHOSPHATE [Concomitant]
  8. HEPARINOID [Concomitant]

REACTIONS (11)
  - Death [Fatal]
  - Rhabdomyolysis [Unknown]
  - Diarrhoea [Unknown]
  - Pyrexia [Unknown]
  - Musculoskeletal pain [Unknown]
  - Back pain [Unknown]
  - Breath sounds abnormal [Unknown]
  - Depressed level of consciousness [Recovering/Resolving]
  - Blood pressure systolic decreased [Unknown]
  - Hepatic failure [Unknown]
  - Renal failure [Unknown]
